FAERS Safety Report 16525117 (Version 1)
Quarter: 2019Q3

REPORT INFORMATION
  Report Type: Spontaneous
  Country: BR (occurrence: BR)
  Receive Date: 20190703
  Receipt Date: 20190703
  Transmission Date: 20191004
  Serious: Yes (Other)
  Sender: FDA-Public Use
  Company Number: BR-009507513-1906BRA010539

PATIENT
  Sex: Female

DRUGS (1)
  1. IMPLANON [Suspect]
     Active Substance: ETONOGESTREL
     Dosage: 1 IMPLANT
     Route: 059
     Dates: start: 200808, end: 201901

REACTIONS (6)
  - Libido decreased [Recovered/Resolved]
  - Maternal exposure before pregnancy [Unknown]
  - Incorrect product administration duration [Unknown]
  - Vulvovaginal dryness [Recovered/Resolved]
  - Hypomenorrhoea [Recovered/Resolved]
  - Abortion spontaneous [Unknown]

NARRATIVE: CASE EVENT DATE: 201108
